FAERS Safety Report 4749380-8 (Version None)
Quarter: 2005Q3

REPORT INFORMATION
  Report Type: 
  Country: None (occurrence: None)
  Receive Date: 20050819
  Receipt Date: 20050207
  Transmission Date: 20060218
  Serious: Yes (Hospitalization, Other)
  Sender: FDA-Public Use
  Company Number: US-MERCK-0502USA00710

PATIENT
  Age: 64 Year
  Sex: Male
  Weight: 113 kg

DRUGS (3)
  1. VIOXX [Suspect]
     Route: 048
     Dates: start: 20000101, end: 20040930
  2. VIOXX [Suspect]
     Route: 048
  3. HYZAAR [Concomitant]
     Route: 048

REACTIONS (12)
  - ADVERSE EVENT [None]
  - ARTHRALGIA [None]
  - ATRIAL FIBRILLATION [None]
  - CARDIAC FAILURE CONGESTIVE [None]
  - CARDIOMYOPATHY [None]
  - CORONARY ARTERY ATHEROSCLEROSIS [None]
  - DIASTOLIC DYSFUNCTION [None]
  - HYPOPROTHROMBINAEMIA [None]
  - MYOCARDIAL INFARCTION [None]
  - MYOCARDIAL ISCHAEMIA [None]
  - OEDEMA PERIPHERAL [None]
  - PAIN IN EXTREMITY [None]
